FAERS Safety Report 17891520 (Version 6)
Quarter: 2022Q3

REPORT INFORMATION
  Report Type: Spontaneous
  Country: ES (occurrence: ES)
  Receive Date: 20200612
  Receipt Date: 20220921
  Transmission Date: 20221026
  Serious: Yes (Other)
  Sender: FDA-Public Use
  Company Number: ES-SUN PHARMACEUTICAL INDUSTRIES LTD-2020RR-248828

PATIENT
  Age: 46 Year
  Sex: Male

DRUGS (16)
  1. FENTANYL [Interacting]
     Active Substance: FENTANYL
     Indication: Product used for unknown indication
     Dosage: UNK
     Route: 062
  2. PRAVASTATIN [Interacting]
     Active Substance: PRAVASTATIN
     Indication: Product used for unknown indication
     Dosage: UNK
     Route: 065
  3. FENOFIBRATE [Interacting]
     Active Substance: FENOFIBRATE
     Indication: Product used for unknown indication
     Dosage: UNK
     Route: 065
     Dates: end: 2019
  4. BUPRENORPHINE [Interacting]
     Active Substance: BUPRENORPHINE
     Indication: Chest pain
     Route: 062
  5. FENOFIBRATE\PRAVASTATIN [Concomitant]
     Active Substance: FENOFIBRATE\PRAVASTATIN
     Indication: Hypercholesterolaemia
     Route: 065
  6. AMITRIPTYLINE [Concomitant]
     Active Substance: AMITRIPTYLINE
     Indication: Depression
     Route: 065
  7. EZETIMIBE [Concomitant]
     Active Substance: EZETIMIBE
     Indication: Hypercholesterolaemia
     Route: 065
  8. ACETAMINOPHEN [Concomitant]
     Active Substance: ACETAMINOPHEN
     Indication: Chest pain
     Route: 065
  9. METAMIZOLE [Concomitant]
     Active Substance: METAMIZOLE
     Indication: Chest pain
     Dosage: 0/1/0/0
     Route: 065
  10. METFORMIN [Concomitant]
     Active Substance: METFORMIN HYDROCHLORIDE
     Indication: Type 2 diabetes mellitus
     Route: 065
  11. ACETAMINOPHEN\TRAMADOL [Concomitant]
     Active Substance: ACETAMINOPHEN\TRAMADOL
     Indication: Chest pain
     Route: 065
  12. PREGABALIN [Concomitant]
     Active Substance: PREGABALIN
     Indication: Chest pain
     Route: 065
  13. ETORICOXIB [Concomitant]
     Active Substance: ETORICOXIB
     Indication: Chest pain
     Dosage: 1/0/0/0
     Route: 065
  14. LORAZEPAM [Concomitant]
     Active Substance: LORAZEPAM
     Indication: Anxiety
     Route: 065
  15. VASERETIC [Concomitant]
     Active Substance: ENALAPRIL MALEATE\HYDROCHLOROTHIAZIDE
     Indication: Hypertension
     Dosage: ENALAPRIL 20 MG/ HIDROCLOROTIAZIDA 12.5 MG
     Route: 065
  16. FENTANYL [Concomitant]
     Active Substance: FENTANYL
     Indication: Chest pain
     Route: 002

REACTIONS (7)
  - Hepatic enzyme increased [Recovering/Resolving]
  - Gamma-glutamyltransferase increased [Recovering/Resolving]
  - Drug interaction [Recovered/Resolved]
  - Anxiety [Unknown]
  - Withdrawal syndrome [Unknown]
  - Off label use [Unknown]
  - Incorrect route of product administration [Unknown]
